FAERS Safety Report 14452023 (Version 1)
Quarter: 2018Q1

REPORT INFORMATION
  Report Type: Spontaneous
  Country: US (occurrence: US)
  Receive Date: 20180129
  Receipt Date: 20180129
  Transmission Date: 20180509
  Serious: No
  Sender: FDA-Public Use
  Company Number: US-ABBVIE-17K-163-2136014-00

PATIENT

DRUGS (1)
  1. HUMIRA [Suspect]
     Active Substance: ADALIMUMAB
     Indication: REITER^S SYNDROME
     Route: 058

REACTIONS (2)
  - Eczema [Not Recovered/Not Resolved]
  - Off label use [Not Recovered/Not Resolved]
